FAERS Safety Report 7997937-3 (Version None)
Quarter: 2011Q4

REPORT INFORMATION
  Report Type: 
  Country: None (occurrence: None)
  Receive Date: 20111221
  Receipt Date: 20111212
  Transmission Date: 20120403
  Serious: Yes (Other)
  Sender: FDA-Public Use
  Company Number: FR-NOVOPROD-341388

PATIENT

DRUGS (4)
  1. METFORMIN HCL [Concomitant]
  2. VICTOZA [Suspect]
     Indication: PRODUCT USED FOR UNKNOWN INDICATION
     Dosage: UNK
     Route: 065
     Dates: start: 20100101
  3. DIAMICRON [Concomitant]
  4. LEVEMIR [Concomitant]

REACTIONS (1)
  - PANCREATIC CARCINOMA [None]
